FAERS Safety Report 8205224 (Version 2)
Quarter: 2012Q4

REPORT INFORMATION
  Report Type: 
  Country: US (occurrence: US)
  Receive Date: 20111027
  Receipt Date: 20120904
  Transmission Date: 20130627
  Serious: No
  Sender: FDA-Public Use
  Company Number: US-AMGEN-USASP2010008512

PATIENT
  Age: 59 None
  Sex: Female

DRUGS (1)
  1. ENBREL [Suspect]
     Indication: RHEUMATOID ARTHRITIS
     Dosage: 50 mg, qwk
     Route: 058
     Dates: start: 20101130, end: 20120228

REACTIONS (6)
  - Arthritis [Not Recovered/Not Resolved]
  - Fall [Recovering/Resolving]
  - Contusion [Unknown]
  - Pain [Recovering/Resolving]
  - Joint swelling [Recovering/Resolving]
  - Injection site pain [Unknown]
